FAERS Safety Report 18571433 (Version 1)
Quarter: 2020Q4

REPORT INFORMATION
  Report Type: Spontaneous
  Country: BR (occurrence: BR)
  Receive Date: 20201202
  Receipt Date: 20201202
  Transmission Date: 20210114
  Serious: Yes (Other)
  Sender: FDA-Public Use
  Company Number: NVSC2020BR318611

PATIENT
  Sex: Male

DRUGS (1)
  1. TEGRETOL [Suspect]
     Active Substance: CARBAMAZEPINE
     Indication: PRODUCT USED FOR UNKNOWN INDICATION
     Dosage: UNK, 20 YEARS AGO, 60 CP
     Route: 065

REACTIONS (3)
  - Product dose omission issue [Unknown]
  - Somnolence [Not Recovered/Not Resolved]
  - Epilepsy [Recovered/Resolved]
